FAERS Safety Report 9188781 (Version 2)
Quarter: 2013Q1

REPORT INFORMATION
  Report Type: Spontaneous
  Country: IE (occurrence: IE)
  Receive Date: 20130326
  Receipt Date: 20130328
  Transmission Date: 20140127
  Serious: Yes (Other)
  Sender: FDA-Public Use
  Company Number: PHFR2012IE005327

PATIENT
  Age: 36 None
  Sex: Male
  Weight: 91 kg

DRUGS (14)
  1. CLOZARIL [Suspect]
     Indication: PSYCHOTIC DISORDER
     Dosage: 275 MG, DAILY
     Route: 048
     Dates: start: 201011
  2. CLOZARIL [Suspect]
     Dosage: 125 MG, UNK
  3. CLOZARIL [Suspect]
     Dosage: 175 MG, UNK
     Route: 048
  4. ROSUVASTATIN [Concomitant]
     Indication: BLOOD CHOLESTEROL INCREASED
     Dosage: 10 MG, DAILY
     Route: 048
  5. BISOPROLOL [Concomitant]
     Indication: HYPERTENSION
     Dosage: 3.75 MG, DAILY
     Route: 048
  6. NEXIUM-MUPS//ESOMEPRAZOLE MAGNESIUM [Concomitant]
     Indication: ANTACID THERAPY
     Dosage: 40 MG, DAILY
     Route: 048
  7. NEXIUM-MUPS//ESOMEPRAZOLE MAGNESIUM [Concomitant]
     Dosage: 20 MG, BID
     Route: 048
  8. STEMETIL//PROCHLORPERAZINE [Concomitant]
     Indication: ANTIEMETIC SUPPORTIVE CARE
     Dosage: 10 MG, DAILY
     Route: 048
  9. METFORMIN [Concomitant]
     Indication: DIABETES MELLITUS
     Dosage: 1000 MG, DAILY
     Route: 048
  10. ESCITALOPRAM [Concomitant]
     Indication: DEPRESSION
     Dosage: 20 MG, DAILY
     Route: 048
  11. ESCITALOPRAM [Concomitant]
     Indication: DEPRESSION
  12. EPILIM [Concomitant]
     Indication: CONVULSION
     Dosage: 1200 ML, DAILY
     Route: 048
  13. HALOPERIDOL [Concomitant]
     Indication: PSYCHOTIC DISORDER
     Dosage: 10 MG, DAILY
     Route: 048
  14. STEMETIL [Concomitant]
     Indication: NAUSEA
     Dosage: 5 MG, BID
     Route: 048

REACTIONS (4)
  - Differential white blood cell count abnormal [Recovered/Resolved]
  - Type 2 diabetes mellitus [Unknown]
  - Upper respiratory tract infection [Recovered/Resolved]
  - White blood cell count increased [Unknown]
